FAERS Safety Report 18915172 (Version 4)
Quarter: 2021Q2

REPORT INFORMATION
  Report Type: Spontaneous
  Country: US (occurrence: US)
  Receive Date: 20210219
  Receipt Date: 20210413
  Transmission Date: 20210717
  Serious: Yes (Hospitalization, Other)
  Sender: FDA-Public Use
  Company Number: US-GILEAD-2021-0517350

PATIENT
  Age: 55 Year
  Sex: Female

DRUGS (5)
  1. SOFOSBUVIR;VELPATASVIR [Suspect]
     Active Substance: SOFOSBUVIR\VELPATASVIR
     Indication: CHRONIC HEPATITIS C
     Dosage: 1 DOSAGE FORM, QD
     Route: 048
  2. ADVIL [Concomitant]
     Active Substance: IBUPROFEN
  3. MOTRIN [Concomitant]
     Active Substance: IBUPROFEN
  4. CANNABIDIOL [Concomitant]
     Active Substance: CANNABIDIOL
  5. ALEVE [Concomitant]
     Active Substance: NAPROXEN SODIUM

REACTIONS (4)
  - Product dose omission issue [Unknown]
  - Sciatic nerve injury [Unknown]
  - Back pain [Unknown]
  - Substance use [Unknown]
